FAERS Safety Report 16657693 (Version 4)
Quarter: 2019Q3

REPORT INFORMATION
  Report Type: Spontaneous
  Country: JP (occurrence: JP)
  Receive Date: 20190801
  Receipt Date: 20190816
  Transmission Date: 20191004
  Serious: Yes (Other)
  Sender: FDA-Public Use
  Company Number: PHJP2019JP009857

PATIENT
  Sex: Female

DRUGS (2)
  1. PREDNISOLONE. [Concomitant]
     Active Substance: PREDNISOLONE
     Indication: SYSTEMIC LUPUS ERYTHEMATOSUS
     Dosage: UNK
     Route: 048
  2. CICLOSPORIN [Suspect]
     Active Substance: CYCLOSPORINE
     Indication: MYELITIS TRANSVERSE
     Dosage: UNK
     Route: 065

REACTIONS (11)
  - Systemic lupus erythematosus [Unknown]
  - Bacteriuria [Unknown]
  - Lupus nephritis [Recovered/Resolved]
  - Complement factor decreased [Unknown]
  - Pancytopenia [Unknown]
  - Lupus cystitis [Recovered/Resolved]
  - Haematuria [Recovered/Resolved]
  - Anaemia [Unknown]
  - Proteinuria [Unknown]
  - Pyuria [Unknown]
  - Product use in unapproved indication [Unknown]

NARRATIVE: CASE EVENT DATE: 2013
